FAERS Safety Report 19256457 (Version 3)
Quarter: 2021Q2

REPORT INFORMATION
  Report Type: Report from Study
  Country: None (occurrence: IL)
  Receive Date: 20210513
  Receipt Date: 20210617
  Transmission Date: 20210717
  Serious: Yes (Other)
  Sender: FDA-Public Use
  Company Number: IL-ABBVIE-21K-082-3897273-00

PATIENT
  Sex: Female

DRUGS (6)
  1. HUMIRA [Suspect]
     Active Substance: ADALIMUMAB
     Indication: COLITIS ULCERATIVE
  2. OMEPRADEX [Concomitant]
     Active Substance: OMEPRAZOLE
     Indication: PRODUCT USED FOR UNKNOWN INDICATION
  3. PROGESTERONE. [Concomitant]
     Active Substance: PROGESTERONE
     Indication: ENDOMETRIOSIS
  4. HUMIRA [Suspect]
     Active Substance: ADALIMUMAB
     Indication: ARTHRITIS ENTEROPATHIC
     Route: 058
     Dates: start: 20201012, end: 2021
  5. VISABELLE [Concomitant]
     Indication: ENDOMETRIOSIS
  6. PENTASA [Concomitant]
     Active Substance: MESALAMINE
     Indication: COLITIS ULCERATIVE
     Dosage: DAILY

REACTIONS (17)
  - Loss of personal independence in daily activities [Unknown]
  - Basal cell carcinoma [Unknown]
  - Rash [Unknown]
  - Autoimmune disorder [Unknown]
  - Lupus-like syndrome [Unknown]
  - Adverse drug reaction [Unknown]
  - Feeling abnormal [Unknown]
  - Gastrointestinal scarring [Unknown]
  - Diarrhoea haemorrhagic [Recovered/Resolved]
  - Weight decreased [Unknown]
  - Weight increased [Unknown]
  - Periorbital swelling [Unknown]
  - Condition aggravated [Unknown]
  - Loss of personal independence in daily activities [Unknown]
  - Arthralgia [Unknown]
  - Hypertension [Recovering/Resolving]
  - Gastrointestinal pain [Recovered/Resolved]

NARRATIVE: CASE EVENT DATE: 2020
